FAERS Safety Report 18740129 (Version 1)
Quarter: 2021Q1

REPORT INFORMATION
  Report Type: Spontaneous
  Country: FR (occurrence: FR)
  Receive Date: 20210114
  Receipt Date: 20210114
  Transmission Date: 20210419
  Serious: Yes (Other)
  Sender: FDA-Public Use
  Company Number: FR-PFIZER INC-2021009184

PATIENT

DRUGS (5)
  1. CLINDAMYCIN PHOSPHATE. [Suspect]
     Active Substance: CLINDAMYCIN PHOSPHATE
     Indication: ARTHRITIS INFECTIVE
     Dosage: UNK
  2. FUSIDIC ACID [Suspect]
     Active Substance: FUSIDIC ACID
     Indication: ARTHRITIS INFECTIVE
     Dosage: UNK
     Route: 065
  3. ERYTHROMYCIN. [Suspect]
     Active Substance: ERYTHROMYCIN
     Dosage: UNK
     Route: 065
  4. FUSIDIC ACID [Suspect]
     Active Substance: FUSIDIC ACID
     Indication: OSTEOMYELITIS
     Dosage: UNK
     Route: 065
  5. CLINDAMYCIN PHOSPHATE. [Suspect]
     Active Substance: CLINDAMYCIN PHOSPHATE
     Indication: OSTEOMYELITIS
     Dosage: 600 MG
     Route: 048

REACTIONS (2)
  - Gastrointestinal toxicity [Unknown]
  - Pathogen resistance [Unknown]
